FAERS Safety Report 14004521 (Version 7)
Quarter: 2020Q3

REPORT INFORMATION
  Report Type: Report from Study
  Country: CN (occurrence: CN)
  Receive Date: 20170922
  Receipt Date: 20200915
  Transmission Date: 20201102
  Serious: Yes (Death, Hospitalization)
  Sender: FDA-Public Use
  Company Number: CN-AMGEN-CHNCT2017142082

PATIENT
  Age: 69 Year
  Sex: Male
  Weight: 54.5 kg

DRUGS (17)
  1. POTASSIUM CHLORIDE. [Concomitant]
     Active Substance: POTASSIUM CHLORIDE
     Dosage: 0.5 GRAM
     Route: 048
     Dates: start: 20170810, end: 20170913
  2. CALCIUM CHLORIDE. [Concomitant]
     Active Substance: CALCIUM CHLORIDE
     Dosage: 20 MILLILITER
     Route: 042
     Dates: start: 20170504, end: 20170504
  3. SODIUM CHLORIDE. [Concomitant]
     Active Substance: SODIUM CHLORIDE
     Dosage: 250 TO 500 ML, UNK
     Route: 042
     Dates: start: 20170824, end: 20170908
  4. CEFOPERAZONE SODIUM AND SULBACTAM SODIUM [Concomitant]
     Active Substance: CEFOPERAZONE SODIUM\SULBACTAM SODIUM
     Dosage: 3 GRAM
     Route: 042
     Dates: start: 20170516, end: 20170518
  5. MOXIFLOXACIN HYDROCHLORIDE. [Concomitant]
     Active Substance: MOXIFLOXACIN HYDROCHLORIDE
     Dosage: 400 MILLIGRAM
     Route: 048
     Dates: start: 20170515, end: 20170516
  6. VALACICLOVIR [Concomitant]
     Active Substance: VALACYCLOVIR HYDROCHLORIDE
     Dosage: 300 MILLIGRAM
     Route: 048
     Dates: start: 20170504, end: 20170915
  7. TEICOPLANIN [Concomitant]
     Active Substance: TEICOPLANIN
     Dosage: 0.2 GRAM
     Route: 042
     Dates: start: 20170509, end: 20170520
  8. GENTAMICIN. [Concomitant]
     Active Substance: GENTAMICIN
     Dosage: 1 UNK
     Route: 061
     Dates: start: 20170908, end: 20170913
  9. AMBROXOL HYDROCHLORIDE [Concomitant]
     Active Substance: AMBROXOL HYDROCHLORIDE
     Dosage: 90 MICROGRAM
     Route: 042
     Dates: start: 20170516, end: 20170522
  10. CHYMOTRYPSIN [Concomitant]
     Active Substance: CHYMOTRYPSIN
     Dosage: 4000 UNK
     Route: 050
     Dates: start: 20170516, end: 20170519
  11. IMIPENEM AND CILASTATIN SODIUM [Concomitant]
     Active Substance: CILASTATIN SODIUM\IMIPENEM
     Dosage: 0.5 GRAM
     Route: 042
     Dates: start: 20170518, end: 20170520
  12. CARFILZOMIB [Suspect]
     Active Substance: CARFILZOMIB
     Indication: PLASMA CELL MYELOMA
     Dosage: 43 MILLIGRAM, PER CHEMO REGIM
     Route: 042
     Dates: start: 20170505, end: 20170908
  13. CALCITRIOL. [Concomitant]
     Active Substance: CALCITRIOL
     Dosage: 0.25 MICROGRAM
     Route: 048
     Dates: start: 20170707, end: 20170913
  14. ALBUMIN PREPARED FROM HUMAN PLASMA [Concomitant]
     Dosage: 50 MILLILITER
     Route: 042
     Dates: start: 20170908, end: 20170919
  15. DEXAMETHASONE. [Suspect]
     Active Substance: DEXAMETHASONE
     Indication: PLASMA CELL MYELOMA
     Dosage: UNK UNK, PER CHEMO REGIM
     Route: 042
     Dates: start: 20170505, end: 20170915
  16. RIVAROXABAN [Concomitant]
     Active Substance: RIVAROXABAN
     Dosage: 10 MILLIGRAM
     Route: 048
     Dates: start: 20170811, end: 20170915
  17. PARACETAMOL + CAFFEINE [Concomitant]
     Active Substance: ACETAMINOPHEN\CAFFEINE
     Dosage: 1 UNK
     Route: 048
     Dates: start: 20170510, end: 20170510

REACTIONS (1)
  - Cardiac amyloidosis [Fatal]

NARRATIVE: CASE EVENT DATE: 20170915
